FAERS Safety Report 8998265 (Version 1)
Quarter: 2013Q1

REPORT INFORMATION
  Report Type: Spontaneous
  Country: IN (occurrence: IN)
  Receive Date: 20130104
  Receipt Date: 20130104
  Transmission Date: 20140127
  Serious: Yes (Death, Hospitalization, Other)
  Sender: FDA-Public Use
  Company Number: PHHY2013IN001173

PATIENT
  Age: 77 Year
  Sex: Female

DRUGS (2)
  1. EXELON PATCH [Suspect]
     Indication: DEMENTIA ALZHEIMER^S TYPE
     Dosage: 4.6 MG UNK
     Route: 062
     Dates: start: 201212
  2. STEROIDS NOS [Concomitant]

REACTIONS (3)
  - Death [Fatal]
  - Blood glucose increased [Unknown]
  - Cerebral haemorrhage [Unknown]
